FAERS Safety Report 12583570 (Version 1)
Quarter: 2016Q3

REPORT INFORMATION
  Report Type: Spontaneous
  Country: US (occurrence: US)
  Receive Date: 20160722
  Receipt Date: 20160722
  Transmission Date: 20161109
  Serious: No
  Sender: FDA-Public Use
  Company Number: US-GALDERMA-US15005795

PATIENT
  Sex: Female

DRUGS (5)
  1. TRETINOIN. [Concomitant]
     Active Substance: TRETINOIN
     Indication: ACNE
     Route: 061
     Dates: start: 20141003
  2. CERAVE PM MOISTURIZER [Concomitant]
     Active Substance: HYALURONIC ACID
     Indication: DRY SKIN PROPHYLAXIS
     Route: 061
  3. CERAVE FOAMING FACIAL CLEANSER [Concomitant]
     Active Substance: OCTINOXATE\TITANIUM DIOXIDE\ZINC OXIDE
     Route: 061
  4. PHYSICIANS FORMULA MAKEUP [Concomitant]
  5. DIFFERIN [Suspect]
     Active Substance: ADAPALENE
     Indication: ACNE
     Route: 061

REACTIONS (1)
  - Drug ineffective [Not Recovered/Not Resolved]
